FAERS Safety Report 8447892-7 (Version None)
Quarter: 2012Q2

REPORT INFORMATION
  Report Type: 
  Country: None (occurrence: None)
  Receive Date: 20120619
  Receipt Date: 20120608
  Transmission Date: 20120825
  Serious: No
  Sender: FDA-Public Use
  Company Number: US-JNJFOC-20120605713

PATIENT
  Sex: Female

DRUGS (3)
  1. DURAGESIC-100 [Suspect]
     Indication: PAIN
     Route: 062
     Dates: start: 20060401, end: 20090101
  2. FENTANYL [Suspect]
     Indication: PAIN
     Route: 062
     Dates: start: 20090101
  3. DURAGESIC-100 [Suspect]
     Route: 062

REACTIONS (4)
  - APPLICATION SITE RASH [None]
  - WRONG TECHNIQUE IN DRUG USAGE PROCESS [None]
  - PRURITUS [None]
  - HYPERSENSITIVITY [None]
